FAERS Safety Report 15819565 (Version 1)
Quarter: 2019Q1

REPORT INFORMATION
  Report Type: Spontaneous
  Country: GB (occurrence: GB)
  Receive Date: 20190114
  Receipt Date: 20190114
  Transmission Date: 20190417
  Serious: Yes (Other)
  Sender: FDA-Public Use
  Company Number: GB-TEVA-2019-GB-998335

PATIENT
  Age: 72 Year
  Sex: Male
  Weight: 57 kg

DRUGS (9)
  1. ROPINIROLE. [Concomitant]
     Active Substance: ROPINIROLE
  2. CANDESARTAN CILEXETIL. [Concomitant]
     Active Substance: CANDESARTAN CILEXETIL
  3. SPIRONOLACTONE. [Suspect]
     Active Substance: SPIRONOLACTONE
     Route: 048
     Dates: start: 20181130, end: 20181205
  4. LANTUS [Concomitant]
     Active Substance: INSULIN GLARGINE
  5. WARFARIN [Concomitant]
     Active Substance: WARFARIN
  6. BISOPROLOL FUMARATE. [Concomitant]
     Active Substance: BISOPROLOL FUMARATE
  7. HUMALOG [Concomitant]
     Active Substance: INSULIN LISPRO
  8. AMITRIPTYLINE [Concomitant]
     Active Substance: AMITRIPTYLINE
  9. BRISTOL LABS LANSOPRAZOLE GASTRO-RESISTANT [Concomitant]

REACTIONS (1)
  - Blood glucose decreased [Recovered/Resolved]
